FAERS Safety Report 24618450 (Version 3)
Quarter: 2024Q4

REPORT INFORMATION
  Report Type: Spontaneous
  Country: US (occurrence: US)
  Receive Date: 20241114
  Receipt Date: 20241204
  Transmission Date: 20250114
  Serious: Yes (Other)
  Sender: X4 PHARMACEUTICALS
  Company Number: US-X4 PHARMACEUTICALS, INC-US-X4P-2024-000135

PATIENT
  Age: 67 Year
  Sex: Female
  Weight: 59 kg

DRUGS (10)
  1. XOLREMDI [Suspect]
     Active Substance: MAVORIXAFOR
     Indication: Combined immunodeficiency
     Dosage: 400 MILLIGRAM, QD
     Route: 048
     Dates: start: 20240907, end: 20240924
  2. XOLREMDI [Suspect]
     Active Substance: MAVORIXAFOR
     Dosage: 100 MILLIGRAM, QD
     Route: 048
     Dates: start: 20241001
  3. XOLREMDI [Suspect]
     Active Substance: MAVORIXAFOR
     Dosage: 100 MILLIGRAM, TIW
     Route: 048
  4. ZYRTEC [Concomitant]
     Active Substance: CETIRIZINE HYDROCHLORIDE
     Indication: Product used for unknown indication
     Dosage: UNK
  5. GABAPENTIN [Concomitant]
     Active Substance: GABAPENTIN
     Indication: Product used for unknown indication
     Dosage: UNK
  6. PRAMIPEXOLE [Concomitant]
     Active Substance: PRAMIPEXOLE\PRAMIPEXOLE DIHYDROCHLORIDE
     Indication: Product used for unknown indication
     Dosage: UNK
  7. MONTELUKAST [Concomitant]
     Active Substance: MONTELUKAST
     Indication: Product used for unknown indication
     Dosage: UNK
  8. FLONASE [Concomitant]
     Active Substance: FLUTICASONE PROPIONATE
     Indication: Product used for unknown indication
     Dosage: UNK
  9. CRESTOR [Concomitant]
     Active Substance: ROSUVASTATIN CALCIUM
     Indication: Product used for unknown indication
     Dosage: UNK
  10. IBUPROFEN [Concomitant]
     Active Substance: IBUPROFEN
     Indication: Product used for unknown indication
     Dosage: UNK

REACTIONS (8)
  - Pyrexia [Recovering/Resolving]
  - Pain [Unknown]
  - Arthralgia [Unknown]
  - Gastrointestinal disorder [Unknown]
  - Feeling jittery [Recovering/Resolving]
  - Bone pain [Recovering/Resolving]
  - Urinary incontinence [Recovering/Resolving]
  - Neutrophil count increased [Recovered/Resolved]

NARRATIVE: CASE EVENT DATE: 20241031
